FAERS Safety Report 5268593-2 (Version None)
Quarter: 2007Q1

REPORT INFORMATION
  Report Type: 
  Country: None (occurrence: None)
  Receive Date: 20070315
  Receipt Date: 20070315
  Transmission Date: 20070707
  Serious: No
  Sender: FDA-Public Use
  Company Number: None

PATIENT
  Age: 6 Year
  Sex: Male
  Weight: 23 kg

DRUGS (1)
  1. LORATADINE [Suspect]
     Indication: HYPERSENSITIVITY
     Dosage: 2 TSP  QD  PO
     Route: 048
     Dates: start: 20070101, end: 20070312

REACTIONS (1)
  - SLEEP TERROR [None]
